FAERS Safety Report 20877752 (Version 2)
Quarter: 2022Q2

REPORT INFORMATION
  Report Type: Report from Study
  Country: US (occurrence: US)
  Receive Date: 20220526
  Receipt Date: 20220604
  Transmission Date: 20220720
  Serious: Yes (Hospitalization, Other)
  Sender: FDA-Public Use
  Company Number: US-TAKEDA-2022TUS035202

PATIENT
  Age: 2 Year
  Sex: Male

DRUGS (22)
  1. TEDUGLUTIDE [Suspect]
     Active Substance: TEDUGLUTIDE
     Indication: Short-bowel syndrome
     Dosage: 0.500 MILLIGRAM, QD
     Route: 042
     Dates: start: 20210301
  2. TEDUGLUTIDE [Suspect]
     Active Substance: TEDUGLUTIDE
     Indication: Short-bowel syndrome
     Dosage: 0.500 MILLIGRAM, QD
     Route: 042
     Dates: start: 20210301
  3. TEDUGLUTIDE [Suspect]
     Active Substance: TEDUGLUTIDE
     Indication: Short-bowel syndrome
     Dosage: 0.500 MILLIGRAM, QD
     Route: 042
     Dates: start: 20210301
  4. TEDUGLUTIDE [Suspect]
     Active Substance: TEDUGLUTIDE
     Indication: Short-bowel syndrome
     Dosage: 0.500 MILLIGRAM, QD
     Route: 042
     Dates: start: 20210301
  5. OXYBUTYNIN [Concomitant]
     Active Substance: OXYBUTYNIN
     Indication: Spina bifida
     Dosage: 2 MILLIGRAM, BID
     Route: 048
     Dates: start: 20210625
  6. HYDROCORTISONE [Concomitant]
     Active Substance: HYDROCORTISONE
     Indication: Dermatitis diaper
     Dosage: UNK UNK, BID
     Route: 061
     Dates: start: 20210625
  7. LOPERAMIDE [Concomitant]
     Active Substance: LOPERAMIDE
     Indication: Diarrhoea
     Dosage: 1 MILLIGRAM, BID
     Route: 048
     Dates: start: 20201023
  8. OMEPRAZOLE [Concomitant]
     Active Substance: OMEPRAZOLE
     Indication: Retching
     Dosage: 3.6 MILLILITER, QD
     Route: 048
     Dates: start: 20200513, end: 20210108
  9. OMEPRAZOLE [Concomitant]
     Active Substance: OMEPRAZOLE
     Dosage: 1 MILLIGRAM, BID
     Route: 048
     Dates: start: 20201023
  10. OMEPRAZOLE [Concomitant]
     Active Substance: OMEPRAZOLE
     Dosage: 0.5 MILLIGRAM, QD
     Route: 048
     Dates: start: 20210301
  11. CETIRIZINE [Concomitant]
     Active Substance: CETIRIZINE HYDROCHLORIDE
     Indication: Product used for unknown indication
     Dosage: 2.5 MILLILITER, BID
     Route: 050
     Dates: start: 20200325
  12. ENOXAPARIN [Concomitant]
     Active Substance: ENOXAPARIN
     Indication: Deep vein thrombosis
     Dosage: 4 MILLIGRAM
     Route: 050
     Dates: start: 20191019
  13. FAT EMULSION NOS [Concomitant]
     Active Substance: EGG PHOSPHOLIPIDS\SAFFLOWER OIL\SOYBEAN OIL
     Indication: Product used for unknown indication
     Dosage: 19.8 GRAM, QD
     Route: 042
     Dates: start: 20200430
  14. HYDROXYZINE HYDROCHLORIDE [Concomitant]
     Active Substance: HYDROXYZINE HYDROCHLORIDE
     Indication: Dermatitis diaper
     Dosage: UNK
     Route: 061
     Dates: start: 20200430, end: 20210625
  15. IRON\VITAMINS [Concomitant]
     Active Substance: IRON\VITAMINS
     Indication: Product used for unknown indication
     Dosage: 0.5 MILLILITER, QD
     Route: 048
     Dates: start: 20190820, end: 20200918
  16. SODIUM CHLORIDE [Concomitant]
     Active Substance: SODIUM CHLORIDE
     Indication: Nasal congestion
     Dosage: UNK
     Route: 055
     Dates: start: 20191203
  17. SULFASALAZINE [Concomitant]
     Active Substance: SULFASALAZINE
     Indication: Anastomotic ulcer
     Dosage: 125 MILLIGRAM, TID
     Route: 050
  18. PROCTOFOAM HC [Concomitant]
     Active Substance: HYDROCORTISONE ACETATE\PRAMOXINE HYDROCHLORIDE
     Indication: Haematochezia
     Dosage: UNK UNK, BID
     Route: 054
     Dates: start: 20201113, end: 20201204
  19. ERYTHROMYCIN [Concomitant]
     Active Substance: ERYTHROMYCIN
     Indication: Gastrointestinal motility disorder
     Dosage: 40 MILLIGRAM, TID
     Route: 050
     Dates: start: 20200918, end: 20210108
  20. ERYTHROMYCIN [Concomitant]
     Active Substance: ERYTHROMYCIN
     Dosage: 52 MILLIGRAM, TID
     Route: 050
     Dates: start: 20210108, end: 20210423
  21. ERYTHROMYCIN [Concomitant]
     Active Substance: ERYTHROMYCIN
     Dosage: 68 MILLIGRAM, TID
     Route: 050
     Dates: start: 20210423, end: 20210625
  22. ERYTHROMYCIN [Concomitant]
     Active Substance: ERYTHROMYCIN
     Dosage: 34 MILLIGRAM, TID
     Route: 050
     Dates: start: 20210125

REACTIONS (1)
  - Vascular device infection [Recovered/Resolved]

NARRATIVE: CASE EVENT DATE: 20220514
